FAERS Safety Report 17020373 (Version 1)
Quarter: 2019Q4

REPORT INFORMATION
  Report Type: Report from Study
  Country: CA (occurrence: CA)
  Receive Date: 20191112
  Receipt Date: 20191112
  Transmission Date: 20200122
  Serious: Yes (Other)
  Sender: FDA-Public Use
  Company Number: NVSC2019CA030801

PATIENT
  Sex: Male

DRUGS (3)
  1. TAFINLAR [Suspect]
     Active Substance: DABRAFENIB MESYLATE
     Dosage: 150 UNK
     Route: 048
  2. TAFINLAR [Suspect]
     Active Substance: DABRAFENIB MESYLATE
     Indication: MALIGNANT MELANOMA
     Dosage: 100 MG, BID
     Route: 048
     Dates: start: 20190112
  3. MEKINIST [Suspect]
     Active Substance: TRAMETINIB DIMETHYL SULFOXIDE
     Indication: MALIGNANT MELANOMA
     Dosage: 2 MG
     Route: 048
     Dates: start: 20190112

REACTIONS (11)
  - Spinal compression fracture [Unknown]
  - Inguinal hernia [Unknown]
  - Panniculitis [Recovered/Resolved]
  - Intervertebral disc degeneration [Unknown]
  - Cyst [Unknown]
  - Emphysema [Unknown]
  - Diverticulum intestinal [Unknown]
  - Pyrexia [Recovered/Resolved]
  - Mucosal hypertrophy [Unknown]
  - Spinal flattening [Unknown]
  - Tonsillar hypertrophy [Unknown]
